FAERS Safety Report 20330768 (Version 1)
Quarter: 2022Q1

REPORT INFORMATION
  Report Type: Other
  Country: US (occurrence: None)
  Receive Date: 20220113
  Receipt Date: 20220113
  Transmission Date: 20220423
  Serious: Yes (Other)
  Sender: FDA-Public Use
  Company Number: US-ROCHE-2996901

PATIENT
  Sex: Female
  Weight: 55.842 kg

DRUGS (9)
  1. OCREVUS [Suspect]
     Active Substance: OCRELIZUMAB
     Indication: Relapsing multiple sclerosis
     Dosage: 300 MG ON DAY 14 THEN 600 MG EVERY 6 MONTHS; DOT: 15/OCT/2020 AND 27/FEB/2020
     Route: 042
     Dates: start: 2019
  2. LISINOPRIL [Concomitant]
     Active Substance: LISINOPRIL
     Dosage: YES
     Dates: start: 2008
  3. BUPROPION [Concomitant]
     Active Substance: BUPROPION
     Dosage: YES
     Route: 048
     Dates: start: 2002
  4. FLUOXETINE [Concomitant]
     Active Substance: FLUOXETINE HYDROCHLORIDE
     Dosage: YES
     Dates: start: 2010
  5. ATORVASTATIN [Concomitant]
     Active Substance: ATORVASTATIN
     Dosage: YES
     Route: 048
     Dates: start: 2000
  6. MINERALS\VITAMINS [Concomitant]
     Active Substance: MINERALS\VITAMINS
     Dosage: TAKE 1 TABLET BY MOUTH IN THE MORNING AND AT NIGHT. ;ONGOING: YES
     Route: 048
     Dates: start: 202007
  7. TESTOSTERONE [Concomitant]
     Active Substance: TESTOSTERONE
     Dosage: YES
     Route: 048
     Dates: start: 202103
  8. PROGESTERONE [Concomitant]
     Active Substance: PROGESTERONE
     Dosage: YES
     Route: 048
     Dates: start: 202103
  9. ESTRADIOL [Concomitant]
     Active Substance: ESTRADIOL
     Dosage: YES
     Route: 048
     Dates: start: 202103

REACTIONS (4)
  - Arthritis infective [Recovering/Resolving]
  - Blood oestrogen decreased [Recovering/Resolving]
  - Progesterone decreased [Recovering/Resolving]
  - Tendon rupture [Recovering/Resolving]

NARRATIVE: CASE EVENT DATE: 20200101
